FAERS Safety Report 20222337 (Version 1)
Quarter: 2021Q4

REPORT INFORMATION
  Report Type: Spontaneous
  Country: US (occurrence: None)
  Receive Date: 20211223
  Receipt Date: 20211223
  Transmission Date: 20220303
  Serious: Yes (Death)
  Sender: FDA-Public Use
  Company Number: None

PATIENT
  Age: 81 Year
  Sex: Female
  Weight: 95.25 kg

DRUGS (2)
  1. BAMLANIVIMAB [Suspect]
     Active Substance: BAMLANIVIMAB
     Indication: COVID-19
     Dosage: FREQUENCY : ONCE;?
     Route: 042
     Dates: start: 20211217, end: 20211217
  2. ETESEVIMAB [Suspect]
     Active Substance: ETESEVIMAB
     Dosage: FREQUENCY : ONCE;?
     Route: 042
     Dates: start: 20211217, end: 20211217

REACTIONS (8)
  - Malaise [None]
  - Dyspnoea [None]
  - Refusal of treatment by patient [None]
  - Agonal respiration [None]
  - Pulse abnormal [None]
  - Unresponsive to stimuli [None]
  - Pulse absent [None]
  - Respiratory arrest [None]

NARRATIVE: CASE EVENT DATE: 20211217
